FAERS Safety Report 6816229-9 (Version None)
Quarter: 2010Q3

REPORT INFORMATION
  Report Type: 
  Country: None (occurrence: None)
  Receive Date: 20100701
  Receipt Date: 20100701
  Transmission Date: 20110219
  Serious: No
  Sender: FDA-Public Use
  Company Number: None

PATIENT
  Sex: Female
  Weight: 74.5 kg

DRUGS (1)
  1. MIRENA [Suspect]

REACTIONS (1)
  - DRUG PRESCRIBING ERROR [None]
